FAERS Safety Report 10174443 (Version 1)
Quarter: 2014Q2

REPORT INFORMATION
  Report Type: Spontaneous
  Country: US (occurrence: None)
  Receive Date: 20140514
  Receipt Date: 20140514
  Transmission Date: 20141212
  Serious: Yes (Hospitalization)
  Sender: FDA-Public Use
  Company Number: None

PATIENT
  Age: 69 Year
  Sex: Male
  Weight: 112.7 kg

DRUGS (2)
  1. WARFARIN [Suspect]
     Indication: PULMONARY EMBOLISM
     Dates: start: 20140306, end: 20140314
  2. ENOXAPARIN (GENERIC) [Suspect]
     Indication: PULMONARY EMBOLISM
     Dates: start: 20140306, end: 20140314

REACTIONS (2)
  - Subdural haematoma [None]
  - Haemorrhage intracranial [None]
